FAERS Safety Report 24429309 (Version 2)
Quarter: 2024Q4

REPORT INFORMATION
  Report Type: Spontaneous
  Country: US (occurrence: US)
  Receive Date: 20241011
  Receipt Date: 20241023
  Transmission Date: 20250115
  Serious: Yes (Other)
  Sender: BAUSCH AND LOMB
  Company Number: US-BAUSCHBL-2024BNL035334

PATIENT
  Age: 88 Year
  Sex: Male

DRUGS (4)
  1. MINERALS\VITAMINS [Suspect]
     Active Substance: MINERALS\VITAMINS
     Indication: Macular degeneration
     Dosage: 1 SOFT GEL SINGLE
     Route: 048
     Dates: start: 2024, end: 2024
  2. MINERALS\VITAMINS [Suspect]
     Active Substance: MINERALS\VITAMINS
     Indication: Macular degeneration
     Dosage: 1 TABLET CHEWED TWICE A DAY WITH MEALS (1 TABLET BID)
     Route: 048
     Dates: start: 2024
  3. MURO 128 [Suspect]
     Active Substance: SODIUM CHLORIDE
     Indication: Macular degeneration
     Dosage: 1 GTT BID
     Route: 047
  4. TIMOLOL 0.5 % EYE DROPS [Concomitant]
     Indication: Product used for unknown indication
     Dosage: 1 GTT BID
     Route: 047

REACTIONS (3)
  - Rectal haemorrhage [Recovered/Resolved]
  - Wrong product procured [Unknown]
  - Wrong product administered [Unknown]

NARRATIVE: CASE EVENT DATE: 20240101
